FAERS Safety Report 7034988-X (Version None)
Quarter: 2010Q4

REPORT INFORMATION
  Report Type: 
  Country: None (occurrence: None)
  Receive Date: 20101008
  Receipt Date: 20100929
  Transmission Date: 20110411
  Serious: Yes (Hospitalization)
  Sender: FDA-Public Use
  Company Number: US-SANOFI-AVENTIS-2010SA058437

PATIENT
  Age: 75 Year
  Sex: Female

DRUGS (7)
  1. MULTAQ [Suspect]
     Indication: ATRIAL FIBRILLATION
     Route: 048
     Dates: start: 20100825, end: 20100901
  2. METOPROLOL TARTRATE [Concomitant]
  3. DILTIAZEM [Concomitant]
  4. LISINOPRIL [Concomitant]
  5. WARFARIN SODIUM [Concomitant]
  6. PRILOSEC [Concomitant]
  7. LIPITOR [Concomitant]

REACTIONS (1)
  - CARDIAC FAILURE CONGESTIVE [None]
